FAERS Safety Report 19145469 (Version 1)
Quarter: 2021Q2

REPORT INFORMATION
  Report Type: Spontaneous
  Country: US (occurrence: US)
  Receive Date: 20210416
  Receipt Date: 20210416
  Transmission Date: 20210717
  Serious: No
  Sender: FDA-Public Use
  Company Number: US-SA-2021SA125072

PATIENT
  Age: 48 Year
  Sex: Female

DRUGS (2)
  1. CABLIVI [Suspect]
     Active Substance: CAPLACIZUMAB-YHDP
     Dosage: 11 MG, QOD
     Route: 058
     Dates: start: 20210405
  2. CABLIVI [Suspect]
     Active Substance: CAPLACIZUMAB-YHDP
     Indication: THROMBOTIC MICROANGIOPATHY
     Dosage: 11 MG
     Route: 058

REACTIONS (3)
  - Platelet count increased [Unknown]
  - Blood glucose increased [Unknown]
  - Stress [Unknown]

NARRATIVE: CASE EVENT DATE: 202104
